FAERS Safety Report 5863585-4 (Version None)
Quarter: 2008Q3

REPORT INFORMATION
  Report Type: 
  Country: None (occurrence: None)
  Receive Date: 20080828
  Receipt Date: 20080820
  Transmission Date: 20090109
  Serious: Yes (Hospitalization)
  Sender: FDA-Public Use
  Company Number: NL-WYE-H05734108

PATIENT
  Age: 90 Year
  Sex: Female

DRUGS (6)
  1. CORDARONE [Suspect]
     Indication: ATRIAL FIBRILLATION
     Route: 048
     Dates: start: 20080520, end: 20080708
  2. ACENOCOUMAROL [Concomitant]
     Dosage: 1 DF ^VIG INR^
     Route: 048
     Dates: start: 20050101
  3. TEMAZEPAM [Concomitant]
     Route: 048
     Dates: start: 20070101
  4. COZAAR [Concomitant]
     Route: 048
     Dates: start: 20060101
  5. SELOKEEN [Concomitant]
     Route: 048
     Dates: start: 20050101
  6. LANOXIN [Concomitant]
     Route: 048
     Dates: start: 20050101

REACTIONS (2)
  - BRONCHITIS CHRONIC [None]
  - EOSINOPHILIA [None]
